FAERS Safety Report 6152579-X (Version None)
Quarter: 2009Q2

REPORT INFORMATION
  Report Type: 
  Country: None (occurrence: None)
  Receive Date: 20090413
  Receipt Date: 20090403
  Transmission Date: 20091009
  Serious: Yes (Other)
  Sender: FDA-Public Use
  Company Number: US-BAYER-200910986BCC

PATIENT
  Age: 67 Year
  Sex: Female

DRUGS (1)
  1. MILK OF MAGNESIA TAB [Suspect]
     Indication: CONSTIPATION
     Dosage: 45 ML/3-4 DAYS PER WEEK
     Dates: start: 19970101

REACTIONS (4)
  - BLOOD CHOLESTEROL ABNORMAL [None]
  - BLOOD URINE PRESENT [None]
  - HAEMATURIA [None]
  - VITAMIN D DECREASED [None]
